FAERS Safety Report 5358040-4 (Version None)
Quarter: 2007Q2

REPORT INFORMATION
  Report Type: 
  Country: None (occurrence: None)
  Receive Date: 20070530
  Receipt Date: 20061206
  Transmission Date: 20071010
  Serious: Yes (Other)
  Sender: FDA-Public Use
  Company Number: US200606000652

PATIENT
  Age: 56 Year
  Sex: Female
  Weight: 86.2 kg

DRUGS (1)
  1. ZYPREXA [Suspect]
     Dates: start: 20020101

REACTIONS (5)
  - DIABETES MELLITUS [None]
  - DIABETIC KETOACIDOSIS [None]
  - GLYCOSURIA [None]
  - HYPERGLYCAEMIA [None]
  - HYPERINSULINISM [None]
